FAERS Safety Report 8190745-2 (Version None)
Quarter: 2012Q1

REPORT INFORMATION
  Report Type: 
  Country: None (occurrence: None)
  Receive Date: 20120307
  Receipt Date: 20120224
  Transmission Date: 20120608
  Serious: Yes (Congenital Anomaly, Other)
  Sender: FDA-Public Use
  Company Number: CA-FRI-1000027327

PATIENT
  Sex: Female

DRUGS (2)
  1. RANITIDINE [Concomitant]
     Dosage: 300 MG
     Route: 064
  2. CELEXA [Suspect]
     Dosage: 40 MG
     Route: 064
     Dates: end: 20070401

REACTIONS (3)
  - FOETAL EXPOSURE DURING PREGNANCY [None]
  - HYPOTONIA [None]
  - VERTICAL TALUS [None]
